FAERS Safety Report 11920165 (Version 1)
Quarter: 2016Q1

REPORT INFORMATION
  Report Type: Spontaneous
  Country: CA (occurrence: CA)
  Receive Date: 20160115
  Receipt Date: 20160115
  Transmission Date: 20160526
  Serious: Yes (Hospitalization)
  Sender: FDA-Public Use
  Company Number: CA-TEVA-625657ACC

PATIENT
  Age: 66 Year
  Sex: Female
  Weight: 175 kg

DRUGS (20)
  1. BACLOFEN. [Concomitant]
     Active Substance: BACLOFEN
  2. INSULIN REGULAR [Concomitant]
     Active Substance: INSULIN NOS
  3. QUETIAPINE XR [Concomitant]
     Active Substance: QUETIAPINE
  4. VENLAFAXINE XR [Concomitant]
     Active Substance: VENLAFAXINE HYDROCHLORIDE
  5. ACETAMINOPHEN. [Concomitant]
     Active Substance: ACETAMINOPHEN
  6. LEVEMIR [Concomitant]
     Active Substance: INSULIN DETEMIR
     Route: 058
  7. AMOXICILLIN W/CLAVULANATE [Suspect]
     Active Substance: AMOXICILLIN\CLAVULANATE POTASSIUM
     Indication: CELLULITIS
     Route: 048
  8. PIPERACILLIN AND TAZOBACTAM [Suspect]
     Active Substance: PIPERACILLIN SODIUM\TAZOBACTAM SODIUM
     Route: 042
  9. CLONAZEPAM. [Concomitant]
     Active Substance: CLONAZEPAM
  10. METFORMIN [Concomitant]
     Active Substance: METFORMIN HYDROCHLORIDE
  11. MICRO-K EXTENCAPS [Concomitant]
     Active Substance: POTASSIUM CHLORIDE
  12. PRAMIPEXOLE. [Concomitant]
     Active Substance: PRAMIPEXOLE
  13. BISACODYL. [Concomitant]
     Active Substance: BISACODYL
  14. LEVOTHYROXINE. [Concomitant]
     Active Substance: LEVOTHYROXINE
  15. NOVOMIX 30 [Concomitant]
     Active Substance: INSULIN ASPART
     Route: 058
  16. JENTADUETO [Concomitant]
     Active Substance: LINAGLIPTIN\METFORMIN HYDROCHLORIDE
  17. SPIRONOLACTONE. [Concomitant]
     Active Substance: SPIRONOLACTONE
  18. PIPERACILLIN AND TAZOBACTAM [Suspect]
     Active Substance: PIPERACILLIN SODIUM\TAZOBACTAM SODIUM
     Indication: CELLULITIS
     Dosage: 18 GRAM DAILY;
     Route: 042
  19. FUROSEMIDE. [Concomitant]
     Active Substance: FUROSEMIDE
  20. AMOXICILLIN W/CLAVULANATE [Suspect]
     Active Substance: AMOXICILLIN\CLAVULANATE POTASSIUM
     Indication: SEPSIS

REACTIONS (3)
  - Eczema infected [Unknown]
  - Rash maculo-papular [Unknown]
  - Rash [Unknown]
